FAERS Safety Report 18086722 (Version 1)
Quarter: 2020Q3

REPORT INFORMATION
  Report Type: Spontaneous
  Country: US (occurrence: US)
  Receive Date: 20200728
  Receipt Date: 20200728
  Transmission Date: 20201103
  Serious: No
  Sender: FDA-Public Use
  Company Number: None

PATIENT
  Sex: Female

DRUGS (15)
  1. HUMIRA [Suspect]
     Active Substance: ADALIMUMAB
     Indication: RHEUMATOID ARTHRITIS
     Dosage: ?          OTHER FREQUENCY:EVERY 14 DAYS;?
     Route: 058
     Dates: start: 20190226
  2. CLOPIDOGREL [Concomitant]
     Active Substance: CLOPIDOGREL BISULFATE
  3. SUCRALFATE. [Concomitant]
     Active Substance: SUCRALFATE
  4. ATORVASTATIN [Concomitant]
     Active Substance: ATORVASTATIN
  5. ISOSORB [Concomitant]
  6. QUEITIAPINE [Concomitant]
  7. BUSIPONE [Concomitant]
  8. LISINOPRIL. [Concomitant]
     Active Substance: LISINOPRIL
  9. CLOBETASOL [Concomitant]
     Active Substance: CLOBETASOL
  10. LEVOTHYROXIN [Concomitant]
     Active Substance: LEVOTHYROXINE
  11. GABAPENTIN. [Concomitant]
     Active Substance: GABAPENTIN
  12. CARVEDIOIL [Concomitant]
  13. HYDROMORPHON [Concomitant]
     Active Substance: HYDROMORPHONE
  14. LAMOTRIGINE. [Concomitant]
     Active Substance: LAMOTRIGINE
  15. PANTOPRAZOLE [Concomitant]
     Active Substance: PANTOPRAZOLE

REACTIONS (1)
  - Cardiac failure congestive [None]
